FAERS Safety Report 18120003 (Version 1)
Quarter: 2020Q3

REPORT INFORMATION
  Report Type: Spontaneous
  Country: US (occurrence: US)
  Receive Date: 20200806
  Receipt Date: 20200806
  Transmission Date: 20201103
  Serious: Yes (Hospitalization)
  Sender: FDA-Public Use
  Company Number: US-ASTRAZENECA-2020SE96251

PATIENT
  Age: 28959 Day
  Sex: Male
  Weight: 92.1 kg

DRUGS (2)
  1. BRILINTA [Suspect]
     Active Substance: TICAGRELOR
     Indication: CHEST PAIN
     Route: 048
     Dates: start: 20200728
  2. BRILINTA [Suspect]
     Active Substance: TICAGRELOR
     Indication: CHEST PAIN
     Dosage: 2 BRILINTA YESTERDAY AND 1 AT NOON TODAY
     Route: 048

REACTIONS (4)
  - Dyspnoea [Unknown]
  - Hypoacusis [Not Recovered/Not Resolved]
  - Feeling abnormal [Recovered/Resolved]
  - Malaise [Recovered/Resolved]

NARRATIVE: CASE EVENT DATE: 20200728
